FAERS Safety Report 15804924 (Version 1)
Quarter: 2019Q1

REPORT INFORMATION
  Report Type: Spontaneous
  Country: US (occurrence: US)
  Receive Date: 20190110
  Receipt Date: 20190110
  Transmission Date: 20190417
  Serious: Yes (Death, Hospitalization, Other)
  Sender: FDA-Public Use
  Company Number: US-009507513-1901USA000507

PATIENT
  Sex: Female
  Weight: 40.8 kg

DRUGS (16)
  1. CALTRATE [Suspect]
     Active Substance: CALCIUM CARBONATE
     Dosage: UNK, QD
  2. FLAXSEED [Concomitant]
     Active Substance: FLAX SEED
  3. ONE-A-DAY WOMENS 50 PLUS ADVANTAGE [Concomitant]
  4. PRAMIPEXOLE DIHYDROCHLORIDE. [Concomitant]
     Active Substance: PRAMIPEXOLE DIHYDROCHLORIDE
  5. GLUCOVANCE [Suspect]
     Active Substance: GLYBURIDE\METFORMIN HYDROCHLORIDE
     Dosage: UNK
     Dates: start: 2018, end: 2018
  6. CALCIUM (UNSPECIFIED) [Suspect]
     Active Substance: CALCIUM
     Dosage: 1 DOSAGE FORM, BID
  7. OMEGA-3 MARINE TRIGLYCERIDES [Concomitant]
     Active Substance: FISH OIL
     Dosage: DIETARY SUPPLEMENTS
  8. SINEMET [Suspect]
     Active Substance: CARBIDOPA\LEVODOPA
     Indication: PARKINSON^S DISEASE
     Dosage: 2TABLETS, 3 TIMES DAY
  9. CHOLECALCIFEROL [Concomitant]
     Active Substance: CHOLECALCIFEROL
  10. VITAMIN POWER CRANBERRY PLUS VIT C [Concomitant]
  11. AMANTADINE. [Suspect]
     Active Substance: AMANTADINE HYDROCHLORIDE
     Dosage: 274 MILLIGRAM, HS
     Route: 048
     Dates: start: 20180705, end: 201807
  12. ASPIRIN. [Concomitant]
     Active Substance: ASPIRIN
     Dosage: 81 MILLIGRAM (LOW DOSE)
  13. AMANTADINE. [Suspect]
     Active Substance: AMANTADINE HYDROCHLORIDE
     Dosage: 137 MILLIGRAM, HS
     Route: 048
     Dates: start: 201807, end: 201807
  14. AMANTADINE. [Suspect]
     Active Substance: AMANTADINE HYDROCHLORIDE
     Indication: DYSKINESIA
     Dosage: 137 MILLIGRAM, HS
     Route: 048
     Dates: start: 20180628, end: 20180704
  15. SINEMET [Suspect]
     Active Substance: CARBIDOPA\LEVODOPA
     Dosage: 2.5 TABLETS, 3 TIMES A DAY AT 6 AM, 11 AM, AND 4 PM
     Route: 048
     Dates: start: 20180502
  16. ASCORBIC ACID. [Concomitant]
     Active Substance: ASCORBIC ACID
     Dosage: C-500 CHEW

REACTIONS (16)
  - Dehydration [Unknown]
  - Fall [Unknown]
  - Presyncope [Unknown]
  - Acute kidney injury [Unknown]
  - Abnormal dreams [Unknown]
  - Hypercalcaemia [Fatal]
  - Constipation [Unknown]
  - Metabolic encephalopathy [Unknown]
  - Hypoglycaemia [Unknown]
  - Inappropriate schedule of product administration [Unknown]
  - Parkinson^s disease [Fatal]
  - Malnutrition [Fatal]
  - Incontinence [Unknown]
  - Gait disturbance [Unknown]
  - Hallucination [Unknown]
  - Somnolence [Unknown]

NARRATIVE: CASE EVENT DATE: 2018
